FAERS Safety Report 7161125-3 (Version None)
Quarter: 2010Q4

REPORT INFORMATION
  Report Type: 
  Country: None (occurrence: None)
  Receive Date: 20101215
  Receipt Date: 20101206
  Transmission Date: 20110411
  Serious: No
  Sender: FDA-Public Use
  Company Number: US-BIOGENIDEC-2010BI009767

PATIENT
  Age: 62 Year
  Sex: Male

DRUGS (2)
  1. TYSABRI [Suspect]
     Indication: MULTIPLE SCLEROSIS
     Route: 042
     Dates: start: 20080414, end: 20080609
  2. TYSABRI [Suspect]
     Route: 042
     Dates: start: 20100125

REACTIONS (8)
  - ABDOMINAL DISCOMFORT [None]
  - ARTHRITIS [None]
  - DEPRESSED MOOD [None]
  - GAIT DISTURBANCE [None]
  - JOINT SWELLING [None]
  - NERVOUSNESS [None]
  - OEDEMA PERIPHERAL [None]
  - TENDONITIS [None]
